FAERS Safety Report 13062384 (Version 2)
Quarter: 2017Q1

REPORT INFORMATION
  Report Type: Spontaneous
  Country: JP (occurrence: JP)
  Receive Date: 20161226
  Receipt Date: 20170206
  Transmission Date: 20170428
  Serious: Yes (Death, Hospitalization, Other)
  Sender: FDA-Public Use
  Company Number: JP-GILEAD-2016-0250046

PATIENT
  Sex: Male

DRUGS (9)
  1. URSO [Concomitant]
     Active Substance: URSODIOL
  2. BROTIZOLAM [Concomitant]
     Active Substance: BROTIZOLAM
  3. THEOPHYLLIN [Concomitant]
     Active Substance: THEOPHYLLINE ANHYDROUS
  4. AMBROXOL [Concomitant]
     Active Substance: AMBROXOL
  5. KIPRES [Concomitant]
     Active Substance: MONTELUKAST SODIUM
  6. HARVONI [Suspect]
     Active Substance: LEDIPASVIR\SOFOSBUVIR
     Indication: HEPATITIS C
     Dosage: 1 DF, QD
     Route: 048
     Dates: start: 20151110, end: 20160201
  7. MAGLAX [Concomitant]
     Active Substance: MAGNESIUM OXIDE
  8. AZILVA [Concomitant]
     Active Substance: AZILSARTAN KAMEDOXOMIL
  9. LYRICA [Concomitant]
     Active Substance: PREGABALIN

REACTIONS (6)
  - Shock haemorrhagic [Fatal]
  - Oesophageal varices haemorrhage [Fatal]
  - Metastases to lymph nodes [Unknown]
  - Metastases to lung [Unknown]
  - Hepatocellular carcinoma [Unknown]
  - Cardiac arrest [Fatal]

NARRATIVE: CASE EVENT DATE: 20151215
